FAERS Safety Report 14846590 (Version 7)
Quarter: 2024Q2

REPORT INFORMATION
  Report Type: Spontaneous
  Country: US (occurrence: US)
  Receive Date: 20180504
  Receipt Date: 20240611
  Transmission Date: 20240716
  Serious: Yes (Other)
  Sender: FDA-Public Use
  Company Number: US-PFIZER INC-2018182589

PATIENT
  Age: 71 Year
  Sex: Female

DRUGS (1)
  1. XELJANZ XR [Suspect]
     Active Substance: TOFACITINIB CITRATE
     Dosage: 11 MG

REACTIONS (8)
  - Paralysis [Unknown]
  - Product dose omission in error [Unknown]
  - Pain [Unknown]
  - Illness [Not Recovered/Not Resolved]
  - Memory impairment [Unknown]
  - Gait inability [Unknown]
  - Eye disorder [Unknown]
  - Product packaging quantity issue [Unknown]
